FAERS Safety Report 24018529 (Version 1)
Quarter: 2024Q2

REPORT INFORMATION
  Report Type: Spontaneous
  Country: US (occurrence: US)
  Receive Date: 20240627
  Receipt Date: 20240627
  Transmission Date: 20240716
  Serious: No
  Sender: FDA-Public Use
  Company Number: US-TEVA-VS-3209927

PATIENT
  Age: 64 Year
  Sex: Male

DRUGS (4)
  1. PROAIR DIGIHALER [Suspect]
     Active Substance: ALBUTEROL SULFATE
     Indication: Chronic obstructive pulmonary disease
     Route: 065
  2. PROAIR DIGIHALER [Suspect]
     Active Substance: ALBUTEROL SULFATE
  3. PROAIR DIGIHALER [Suspect]
     Active Substance: ALBUTEROL SULFATE
  4. PROAIR DIGIHALER [Suspect]
     Active Substance: ALBUTEROL SULFATE

REACTIONS (3)
  - Device use confusion [Unknown]
  - Drug ineffective [Unknown]
  - Product prescribing issue [Unknown]

NARRATIVE: CASE EVENT DATE: 20240101
